FAERS Safety Report 8964674 (Version 1)
Quarter: 2012Q4

REPORT INFORMATION
  Report Type: 
  Country: GB (occurrence: GB)
  Receive Date: 20121213
  Receipt Date: 20121213
  Transmission Date: 20130627
  Serious: Yes (Other)
  Sender: FDA-Public Use
  Company Number: GB-WATSON-2012-22097

PATIENT
  Age: 69 Year
  Sex: Female

DRUGS (5)
  1. DOXORUBICIN [Suspect]
     Indication: PRODUCT USED FOR UNKNOWN INDICATION
     Dosage: UNK
     Route: 065
  2. PREDNISOLONE (UNKNOWN) [Suspect]
     Indication: NEOPLASM MALIGNANT
     Dosage: unk
     Route: 065
  3. CYCLOPHOSPHAMIDE [Suspect]
     Indication: NEOPLASM MALIGNANT
     Dosage: unk
  4. ONCOVIN [Suspect]
     Indication: NEOPLASM MALIGNANT
     Dosage: unk
  5. RITUXIMAB [Suspect]
     Indication: NEOPLASM MALIGNANT
     Dosage: unk

REACTIONS (9)
  - Rectal haemorrhage [Recovered/Resolved]
  - Syncope [Recovered/Resolved]
  - Diarrhoea [Recovered/Resolved]
  - Malaise [Recovered/Resolved]
  - Decreased appetite [Recovered/Resolved]
  - Nerve injury [Recovered/Resolved]
  - Oedema peripheral [Recovered/Resolved]
  - Irritable bowel syndrome [Recovered/Resolved]
  - Fluid retention [Recovered/Resolved]
